FAERS Safety Report 19764986 (Version 1)
Quarter: 2021Q3

REPORT INFORMATION
  Report Type: Report from Study
  Country: IT (occurrence: IT)
  Receive Date: 20210830
  Receipt Date: 20210830
  Transmission Date: 20211014
  Serious: Yes (Hospitalization)
  Sender: FDA-Public Use
  Company Number: IT-PFIZER INC-202101053271

PATIENT
  Age: 54 Year
  Sex: Female
  Weight: 74 kg

DRUGS (3)
  1. TRABECTEDIN [Suspect]
     Active Substance: TRABECTEDIN
     Indication: OVARIAN CANCER
     Dosage: 1.75 MG, EVERY 3 WEEKS
     Route: 042
     Dates: start: 20201013
  2. TRABECTEDIN [Suspect]
     Active Substance: TRABECTEDIN
     Dosage: 1.75 MG, EVERY 3 WEEKS
     Route: 042
     Dates: start: 20210601
  3. DOXORUBICIN HCL [Suspect]
     Active Substance: DOXORUBICIN HYDROCHLORIDE
     Indication: OVARIAN CANCER
     Dosage: UNK

REACTIONS (2)
  - Pulmonary embolism [Not Recovered/Not Resolved]
  - Thrombosis in device [Unknown]

NARRATIVE: CASE EVENT DATE: 202106
